FAERS Safety Report 6822366-5 (Version None)
Quarter: 2010Q3

REPORT INFORMATION
  Report Type: 
  Country: None (occurrence: None)
  Receive Date: 20100708
  Receipt Date: 20100625
  Transmission Date: 20110219
  Serious: Yes (Hospitalization, Other)
  Sender: FDA-Public Use
  Company Number: PHHY2010DE22693

PATIENT
  Sex: Female
  Weight: 93 kg

DRUGS (11)
  1. ALISKIREN ALI+ [Suspect]
     Indication: HYPERTENSION
     Dosage: 300 MG, PER DAY
     Route: 048
     Dates: start: 20090324, end: 20090928
  2. NITRATES [Concomitant]
  3. ARLEVERT [Concomitant]
     Indication: DIZZINESS
     Dosage: 60 MG, PER DAY
     Route: 048
     Dates: start: 20090320, end: 20100318
  4. OLMETEC [Concomitant]
     Indication: HYPERTENSION
     Dosage: 40 MG, PER DAY
     Route: 048
     Dates: start: 20090320
  5. GLIMEPIRIDE [Concomitant]
     Indication: DIABETES MELLITUS
     Dosage: 3 MG, PER DAY
     Route: 048
     Dates: start: 20090320
  6. ALLOPURINOL [Concomitant]
     Indication: HYPERURICAEMIA
     Dosage: UNK
     Route: 048
     Dates: start: 20090320
  7. SIMVASTATIN [Concomitant]
     Indication: HYPERCHOLESTEROLAEMIA
     Dosage: 20 MG, PER DAY
     Route: 048
     Dates: start: 20090320
  8. NEBIVOLOL HCL [Concomitant]
     Indication: HYPERTENSION
     Dosage: 5 MG, PER DAY
     Route: 048
     Dates: start: 20090320
  9. GLUCOBAY [Concomitant]
     Indication: DIABETES MELLITUS
     Dosage: 150 MG, PER DAY
     Route: 048
     Dates: start: 20090320
  10. ASPIRIN [Concomitant]
     Indication: CORONARY ARTERY DISEASE
     Dosage: 100 MG, PER DAY
     Route: 048
     Dates: start: 20090320
  11. TORASEMIDE [Concomitant]
     Dosage: 10 MG, QD
     Dates: start: 20090928

REACTIONS (5)
  - BLOOD CHOLESTEROL INCREASED [None]
  - BLOOD TRIGLYCERIDES INCREASED [None]
  - CORONARY ARTERY DISEASE [None]
  - GLYCOSYLATED HAEMOGLOBIN INCREASED [None]
  - VASCULAR GRAFT [None]
